FAERS Safety Report 4544705-0 (Version None)
Quarter: 2004Q4

REPORT INFORMATION
  Report Type: 
  Country: None (occurrence: None)
  Receive Date: 20041230
  Receipt Date: 20041215
  Transmission Date: 20050328
  Serious: Yes (Death)
  Sender: FDA-Public Use
  Company Number: S04-IRL-08253-01

PATIENT
  Sex: Female

DRUGS (1)
  1. CITALOPRAM [Suspect]
     Dates: end: 20031001

REACTIONS (3)
  - CELLULITIS [None]
  - CIRCULATORY COLLAPSE [None]
  - DRUG LEVEL ABOVE THERAPEUTIC [None]
